FAERS Safety Report 20187531 (Version 1)
Quarter: 2021Q4

REPORT INFORMATION
  Report Type: Spontaneous
  Country: GB (occurrence: GB)
  Receive Date: 20211215
  Receipt Date: 20211215
  Transmission Date: 20220303
  Serious: Yes (Hospitalization, Other)
  Sender: FDA-Public Use
  Company Number: GB-BoehringerIngelheim-2021-BI-142779

PATIENT
  Age: 68 Year
  Sex: Female

DRUGS (1)
  1. OFEV [Suspect]
     Active Substance: NINTEDANIB
     Indication: Product used for unknown indication

REACTIONS (4)
  - Acute myocardial infarction [Unknown]
  - Acute myocardial infarction [Unknown]
  - Acute coronary syndrome [Unknown]
  - Pulmonary hypertension [Unknown]
